FAERS Safety Report 8509328 (Version 5)
Quarter: 2013Q4

REPORT INFORMATION
  Report Type: Report from Study
  Country: FR (occurrence: FR)
  Receive Date: 20120412
  Receipt Date: 20131121
  Transmission Date: 20140711
  Serious: Yes (Life-Threatening, Hospitalization, Other)
  Sender: FDA-Public Use
  Company Number: FR-BAXTER-2012BAX001907

PATIENT
  Age: 39 Year
  Sex: Male

DRUGS (21)
  1. EXTRANEAL, SOLUTION POUR DIALYSE P?RITON?ALE [Suspect]
     Indication: PERITONEAL DIALYSIS
     Route: 033
     Dates: start: 20120307, end: 20120309
  2. URAPIDIL [Suspect]
     Indication: HYPERTENSION
     Route: 065
     Dates: start: 20120217
  3. OFLOXACINE [Suspect]
     Indication: INFECTION PROPHYLAXIS
     Dosage: 200MG/40 ML
     Route: 042
     Dates: start: 20120214, end: 20120314
  4. FLUINDIONE [Suspect]
     Indication: PRODUCT USED FOR UNKNOWN INDICATION
     Route: 048
     Dates: start: 20111125
  5. FLUINDIONE [Suspect]
     Route: 048
     Dates: start: 20120216
  6. SPASFON                            /00934601/ [Concomitant]
     Indication: PRODUCT USED FOR UNKNOWN INDICATION
     Route: 065
  7. LASILIX                            /00032601/ [Concomitant]
     Indication: PRODUCT USED FOR UNKNOWN INDICATION
     Route: 065
  8. PHYSIONEAL 40 GLUCOSE 1,36%, SOLUTION POUR DIALYSE P?RITON?ALE [Concomitant]
     Indication: PERITONEAL DIALYSIS
     Route: 033
     Dates: start: 20120307
  9. PREDNISONE [Concomitant]
     Indication: PRODUCT USED FOR UNKNOWN INDICATION
     Route: 048
  10. ACEBUTOLOL [Concomitant]
     Indication: PRODUCT USED FOR UNKNOWN INDICATION
     Route: 048
     Dates: start: 20120126
  11. AMLODIPINE [Concomitant]
     Indication: PRODUCT USED FOR UNKNOWN INDICATION
     Route: 048
  12. RAMIPRIL [Concomitant]
     Indication: PRODUCT USED FOR UNKNOWN INDICATION
     Dosage: 1 UNIT
     Route: 065
     Dates: end: 20120217
  13. CALCIUM CARBONATE [Concomitant]
     Indication: PRODUCT USED FOR UNKNOWN INDICATION
     Dosage: 1 TABLET
     Route: 065
  14. ESOMEPRAZOLE [Concomitant]
     Indication: PRODUCT USED FOR UNKNOWN INDICATION
     Route: 065
  15. CALCIFEDIOL [Concomitant]
     Indication: PRODUCT USED FOR UNKNOWN INDICATION
     Dosage: 4 DROPS
     Route: 065
  16. ZOPICLONE [Concomitant]
     Indication: PRODUCT USED FOR UNKNOWN INDICATION
     Route: 065
  17. SODIUM POLYSTYRENE SULFONATE [Concomitant]
     Indication: PRODUCT USED FOR UNKNOWN INDICATION
     Dosage: 1 MEASURING SPOON/DAY
     Route: 065
  18. SEVORANE [Concomitant]
     Indication: ANAESTHESIA
     Route: 065
     Dates: start: 20120214
  19. PROPOFOL [Concomitant]
     Indication: ANAESTHESIA
     Route: 065
     Dates: start: 20120214
  20. SUFENTA [Concomitant]
     Indication: ANAESTHESIA
     Route: 065
     Dates: start: 20120214
  21. PARACETOL [Concomitant]
     Indication: PRODUCT USED FOR UNKNOWN INDICATION
     Route: 065

REACTIONS (18)
  - Toxic epidermal necrolysis [Recovered/Resolved with Sequelae]
  - Pneumonia [Recovered/Resolved with Sequelae]
  - Escherichia sepsis [Unknown]
  - Sepsis [Unknown]
  - Enterobacter infection [Unknown]
  - Delirium [Unknown]
  - Dermatitis contact [Unknown]
  - Polyp [Unknown]
  - Pyrexia [Unknown]
  - Agitation [Unknown]
  - Subcutaneous abscess [Unknown]
  - Klebsiella infection [Unknown]
  - Pseudomonas infection [Unknown]
  - Infectious disease carrier [Unknown]
  - Fluid overload [Unknown]
  - Bipolar I disorder [Unknown]
  - Conjunctival disorder [Unknown]
  - Secretion discharge [Unknown]
